FAERS Safety Report 8464727-7 (Version None)
Quarter: 2012Q2

REPORT INFORMATION
  Report Type: 
  Country: None (occurrence: None)
  Receive Date: 20120626
  Receipt Date: 20120620
  Transmission Date: 20120825
  Serious: No
  Sender: FDA-Public Use
  Company Number: US-PFIZER INC-2012149857

PATIENT
  Sex: Male
  Weight: 90.703 kg

DRUGS (4)
  1. GABAPENTIN [Suspect]
     Indication: DIABETIC NEUROPATHY
     Dosage: 400MG, DAILY
     Route: 048
  2. FENTANYL [Concomitant]
     Indication: PAIN
     Dosage: ONE 25 MG PATCH EVERY 72 HOURS
  3. GABAPENTIN [Suspect]
     Dosage: 600MG, DAILY
     Route: 048
     Dates: start: 20110101
  4. GABAPENTIN [Suspect]
     Dosage: 400MG, DAILY
     Route: 048
     Dates: start: 20120601

REACTIONS (3)
  - TENSION [None]
  - MOOD SWINGS [None]
  - ANXIETY [None]
